FAERS Safety Report 25965645 (Version 1)
Quarter: 2025Q4

REPORT INFORMATION
  Report Type: Spontaneous
  Country: US (occurrence: US)
  Receive Date: 20251027
  Receipt Date: 20251027
  Transmission Date: 20260117
  Serious: No
  Sender: SANOFI AVENTIS
  Company Number: US-SA-2025SA318562

PATIENT
  Sex: Female
  Weight: 63.64 kg

DRUGS (15)
  1. DUPIXENT [Suspect]
     Active Substance: DUPILUMAB
     Indication: Dermatitis atopic
     Dosage: 300 MG, QOW
     Route: 058
  2. DUPIXENT [Suspect]
     Active Substance: DUPILUMAB
     Indication: Psoriasis
  3. RESTASIS [Concomitant]
     Active Substance: CYCLOSPORINE
  4. VITAMIN C [Concomitant]
     Active Substance: ASCORBIC ACID
  5. CALCIUM [Concomitant]
     Active Substance: CALCIUM
  6. OMEGA-3 ACIDS [Concomitant]
     Active Substance: OMEGA-3 FATTY ACIDS
  7. CULTURELLE [Concomitant]
     Active Substance: LACTOBACILLUS RHAMNOSUS
  8. LATANOPROST [Concomitant]
     Active Substance: LATANOPROST
  9. FLUTICASONE FUROATE\SALMETEROL XINAFOATE [Concomitant]
     Active Substance: FLUTICASONE FUROATE\SALMETEROL XINAFOATE
  10. ZYRTEC-D [Concomitant]
     Active Substance: CETIRIZINE HYDROCHLORIDE\PSEUDOEPHEDRINE HYDROCHLORIDE
  11. MONTELUKAST SODIUM [Concomitant]
     Active Substance: MONTELUKAST SODIUM
  12. MINOXIDIL [Concomitant]
     Active Substance: MINOXIDIL
  13. ATORVASTATIN CALCIUM [Concomitant]
     Active Substance: ATORVASTATIN CALCIUM
  14. SYSTANE (HYPROMELLOSE 2910 (4000 MPA.S)) [Concomitant]
     Active Substance: HYPROMELLOSE 2910 (4000 MPA.S)
  15. MYRBETRIQ [Concomitant]
     Active Substance: MIRABEGRON

REACTIONS (4)
  - Asthenia [Unknown]
  - Appetite disorder [Unknown]
  - Myalgia [Unknown]
  - Product use in unapproved indication [Unknown]
